FAERS Safety Report 4271973-5 (Version None)
Quarter: 2004Q1

REPORT INFORMATION
  Report Type: 
  Country: None (occurrence: None)
  Receive Date: 20040115
  Receipt Date: 20020617
  Transmission Date: 20041129
  Serious: Yes (Other)
  Sender: FDA-Public Use
  Company Number: US-BRISTOL-MYERS SQUIBB COMPANY-11911955

PATIENT
  Age: 62 Year
  Sex: Female

DRUGS (16)
  1. ATORVASTATIN [Suspect]
     Dosage: MOST RECENT DOSE PRIOR TO EVENT WAS ON 15-MAY-2001.
     Route: 048
     Dates: start: 20010119
  2. GATIFLOXACIN [Suspect]
     Route: 048
     Dates: start: 20010201, end: 20010315
  3. ASPIRIN [Concomitant]
     Route: 048
     Dates: start: 19980806
  4. LOPRESSOR [Concomitant]
     Route: 048
     Dates: start: 20010213
  5. LISINOPRIL [Concomitant]
     Route: 048
     Dates: start: 20010227
  6. PRILOSEC [Concomitant]
     Route: 048
     Dates: start: 19961105
  7. SYNTHROID [Concomitant]
     Route: 048
     Dates: start: 19961105
  8. PREMARIN [Concomitant]
     Route: 048
     Dates: start: 19961006
  9. GLUCOPHAGE [Concomitant]
     Route: 048
     Dates: start: 19960703
  10. GLYNASE [Concomitant]
     Route: 048
     Dates: start: 19960509
  11. NPH ILETIN II [Concomitant]
     Dosage: DOSAGE FORM IS UNITS
     Route: 058
     Dates: start: 19960101
  12. REGULAR INSULIN [Concomitant]
     Dosage: SLIDING SCALE
     Route: 058
     Dates: start: 19960101
  13. ACIPHEX [Concomitant]
     Route: 048
     Dates: start: 20020228
  14. IMIPRAMINE [Concomitant]
     Indication: URINARY INCONTINENCE
     Dosage: -STOPPED PRIO TO ENROLLMENT IN STUDY AND RESTARTED AFTER ENTERING STUDY.
     Route: 048
     Dates: start: 20020206
  15. HYDROCHLOROTHIAZIDE [Concomitant]
     Route: 048
     Dates: start: 19920211
  16. SELDANE [Concomitant]
     Route: 048
     Dates: start: 19961105

REACTIONS (2)
  - DEPRESSION [None]
  - HYPERGLYCAEMIA [None]
